FAERS Safety Report 9866768 (Version 3)
Quarter: 2014Q1

REPORT INFORMATION
  Report Type: Report from Study
  Country: US (occurrence: US)
  Receive Date: 20140204
  Receipt Date: 20140213
  Transmission Date: 20141002
  Serious: Yes (Death)
  Sender: FDA-Public Use
  Company Number: US-ROCHE-1288869

PATIENT
  Sex: Male

DRUGS (7)
  1. HERCEPTIN [Suspect]
     Indication: OESOPHAGEAL CARCINOMA
     Dosage: [8MG/KG] INTRAVENOUS BOLUS
     Route: 040
     Dates: start: 20131004
  2. HERCEPTIN [Suspect]
     Route: 042
  3. XELODA [Suspect]
     Indication: OESOPHAGEAL CARCINOMA
     Dosage: TOTAL DAILY DOSE 2000MG/M2/DAY
     Route: 048
  4. IRINOTECAN HYDROCHLORIDE [Concomitant]
     Dosage: RPOUTE-IVPB
     Route: 065
  5. ATROPINE SULFATE [Concomitant]
     Dosage: FORM: PUSH
     Route: 042
  6. PALONOSETRON HYDROCHLORIDE [Concomitant]
     Route: 042
  7. DEXAMETHASONE SODIUM PHOSPHATE [Concomitant]
     Route: 042

REACTIONS (8)
  - Disease progression [Fatal]
  - Metastases to spine [Unknown]
  - Pathological fracture [Unknown]
  - Intestinal mass [Unknown]
  - Lymphadenopathy [Unknown]
  - Hepatic lesion [Unknown]
  - Neoplasm malignant [Unknown]
  - Spinal cord compression [Unknown]
